FAERS Safety Report 7728491-9 (Version None)
Quarter: 2011Q3

REPORT INFORMATION
  Report Type: 
  Country: None (occurrence: None)
  Receive Date: 20110905
  Receipt Date: 20110830
  Transmission Date: 20111222
  Serious: Yes (Other)
  Sender: FDA-Public Use
  Company Number: BR-SANOFI-AVENTIS-2011SA053836

PATIENT
  Age: 28 Year
  Sex: Female
  Weight: 70 kg

DRUGS (2)
  1. LANTUS [Suspect]
     Route: 058
     Dates: start: 20090101
  2. HUMALOG [Concomitant]
     Dosage: ACCORDING TO GLYCEMIA
     Route: 058

REACTIONS (9)
  - HYPOGLYCAEMIA [None]
  - SYNCOPE [None]
  - INJECTION SITE REACTION [None]
  - HYPERGLYCAEMIA [None]
  - INJECTION SITE DISCOLOURATION [None]
  - INJECTION SITE HAEMORRHAGE [None]
  - HYPERTHYROIDISM [None]
  - ANAEMIA [None]
  - PRODUCT QUALITY ISSUE [None]
